FAERS Safety Report 10861144 (Version 1)
Quarter: 2015Q1

REPORT INFORMATION
  Report Type: Spontaneous
  Country: US (occurrence: None)
  Receive Date: 20150218
  Receipt Date: 20150218
  Transmission Date: 20150721
  Serious: No
  Sender: FDA-Public Use
  Company Number: None

PATIENT
  Age: 84 Year
  Sex: Female
  Weight: 111 kg

DRUGS (5)
  1. LISINOPRIL. [Concomitant]
     Active Substance: LISINOPRIL
  2. XARELTO [Suspect]
     Active Substance: RIVAROXABAN
     Indication: DEEP VEIN THROMBOSIS
     Dosage: 1 PILL, QD, ORAL
     Route: 048
     Dates: start: 20140506, end: 20140511
  3. AMILORIDE HCL W/ HYDROCHLOROTHIAZIDE [Concomitant]
     Active Substance: AMILORIDE HYDROCHLORIDE\HYDROCHLOROTHIAZIDE
  4. CALTRATE WITH VITAMIN D [Concomitant]
     Active Substance: CALCIUM CARBONATE\VITAMIN D
  5. XARELTO [Suspect]
     Active Substance: RIVAROXABAN
     Indication: DISEASE RECURRENCE
     Dosage: 1 PILL, QD, ORAL
     Route: 048
     Dates: start: 20140506, end: 20140511

REACTIONS (2)
  - Epistaxis [None]
  - Contraindicated drug administered [None]

NARRATIVE: CASE EVENT DATE: 20140511
